FAERS Safety Report 6892177-3 (Version None)
Quarter: 2010Q3

REPORT INFORMATION
  Report Type: 
  Country: None (occurrence: None)
  Receive Date: 20100731
  Receipt Date: 20080224
  Transmission Date: 20110219
  Serious: No
  Sender: FDA-Public Use
  Company Number: US-PFIZER INC-2008016908

PATIENT
  Sex: Female
  Weight: 61.4 kg

DRUGS (2)
  1. NORVASC [Suspect]
     Indication: HYPERTENSION
     Dates: start: 20080201
  2. DIURETICS [Concomitant]

REACTIONS (3)
  - ANXIETY [None]
  - HEADACHE [None]
  - INSOMNIA [None]
